FAERS Safety Report 22167065 (Version 1)
Quarter: 2023Q2

REPORT INFORMATION
  Report Type: Spontaneous
  Country: US (occurrence: None)
  Receive Date: 20230402
  Receipt Date: 20230402
  Transmission Date: 20230721
  Serious: Yes (Life-Threatening, Other)
  Sender: FDA-Public Use
  Company Number: None

PATIENT
  Age: 74 Year
  Sex: Female
  Weight: 85.5 kg

DRUGS (3)
  1. CANNABIS SATIVA SUBSP. INDICA TOP [Suspect]
     Active Substance: CANNABIS SATIVA SUBSP. INDICA TOP
  2. MELATONIN [Concomitant]
     Active Substance: MELATONIN
  3. topical hydroxycortisone [Concomitant]

REACTIONS (3)
  - Accidental exposure to product [None]
  - Substance use [None]
  - Near death experience [None]

NARRATIVE: CASE EVENT DATE: 20230329
